FAERS Safety Report 17986384 (Version 1)
Quarter: 2020Q3

REPORT INFORMATION
  Report Type: Spontaneous
  Country: US (occurrence: US)
  Receive Date: 20200707
  Receipt Date: 20200707
  Transmission Date: 20201103
  Serious: Yes (Hospitalization)
  Sender: FDA-Public Use
  Company Number: US-AUROBINDO-AUR-APL-2020-032098

PATIENT
  Age: 69 Year
  Sex: Male

DRUGS (1)
  1. NALOXONE HYDROCHLORIDE. [Suspect]
     Active Substance: NALOXONE HYDROCHLORIDE
     Indication: OVERDOSE
     Dosage: 2 MILLIGRAM
     Route: 030

REACTIONS (7)
  - Anxiety [Recovering/Resolving]
  - Defaecation disorder [Recovering/Resolving]
  - Flushing [Recovering/Resolving]
  - Drug withdrawal syndrome [Recovering/Resolving]
  - Yawning [Recovering/Resolving]
  - Irritability [Recovering/Resolving]
  - Abdominal pain [Recovering/Resolving]
